FAERS Safety Report 21206845 (Version 2)
Quarter: 2022Q4

REPORT INFORMATION
  Report Type: Report from Study
  Country: CN (occurrence: CN)
  Receive Date: 20220812
  Receipt Date: 20221019
  Transmission Date: 20230113
  Serious: Yes (Other)
  Sender: FDA-Public Use
  Company Number: CN-BAXTER-2022BAX012225

PATIENT
  Age: 73 Year
  Sex: Male
  Weight: 52 kg

DRUGS (38)
  1. AMINO ACIDS\DEXTROSE\ELECTROLYTES NOS\SOYBEAN OIL [Suspect]
     Active Substance: AMINO ACIDS\DEXTROSE\ELECTROLYTES NOS\SOYBEAN OIL
     Indication: Gastric cancer
     Dosage: 1500 ML, ONCE DAILY, AT AN INFUSION RATE 3ML/KG/H, (PERIPHERAL VEIN/CENTRAL VEIN)
     Route: 042
     Dates: start: 20210912, end: 20210912
  2. AMINO ACIDS\DEXTROSE\ELECTROLYTES NOS\SOYBEAN OIL [Suspect]
     Active Substance: AMINO ACIDS\DEXTROSE\ELECTROLYTES NOS\SOYBEAN OIL
     Dosage: 1500 ML,  ONCE DAILY, AT AN INFUSION RATE 3ML/KG/H, (PERIPHERAL VEIN/CENTRAL VEIN)
     Route: 042
     Dates: start: 20210913, end: 20210913
  3. AMINO ACIDS\DEXTROSE\ELECTROLYTES NOS\SOYBEAN OIL [Suspect]
     Active Substance: AMINO ACIDS\DEXTROSE\ELECTROLYTES NOS\SOYBEAN OIL
     Dosage: 1500 ML, ONCE DAILY, AT AN INFUSION RATE 3ML/KG/H, (PERIPHERAL VEIN/CENTRAL VEIN)
     Route: 042
     Dates: start: 20210914, end: 20210914
  4. AMINO ACIDS\DEXTROSE\ELECTROLYTES NOS\SOYBEAN OIL [Suspect]
     Active Substance: AMINO ACIDS\DEXTROSE\ELECTROLYTES NOS\SOYBEAN OIL
     Dosage: 1500 ML, ONCE DAILY, AT AN INFUSION RATE 3ML/KG/H, (PERIPHERAL VEIN/CENTRAL VEIN)
     Route: 042
     Dates: start: 20210915, end: 20210915
  5. AMINO ACIDS\DEXTROSE\ELECTROLYTES NOS\SOYBEAN OIL [Suspect]
     Active Substance: AMINO ACIDS\DEXTROSE\ELECTROLYTES NOS\SOYBEAN OIL
     Dosage: 1500 ML, ONCE DAILY, AT AN INFUSION RATE 3ML/KG/H, (PERIPHERAL VEIN/CENTRAL VEIN)
     Route: 042
     Dates: start: 20210916, end: 20210916
  6. AMINO ACIDS\DEXTROSE\ELECTROLYTES NOS\SOYBEAN OIL [Suspect]
     Active Substance: AMINO ACIDS\DEXTROSE\ELECTROLYTES NOS\SOYBEAN OIL
     Dosage: 1500 ML, ONCE DAILY, AT AN INFUSION RATE 3ML/KG/H, (PERIPHERAL VEIN/CENTRAL VEIN)
     Route: 042
     Dates: start: 20210917, end: 20210917
  7. VITAMINS NOS [Concomitant]
     Active Substance: VITAMINS
     Indication: Drug therapy
     Dosage: 10ML
     Route: 065
     Dates: start: 20210912, end: 20210912
  8. VITAMINS NOS [Concomitant]
     Active Substance: VITAMINS
     Dosage: 10 ML
     Route: 065
     Dates: start: 20210913, end: 20210913
  9. VITAMINS NOS [Concomitant]
     Active Substance: VITAMINS
     Dosage: 10 ML
     Route: 065
     Dates: start: 20210914, end: 20210914
  10. VITAMINS NOS [Concomitant]
     Active Substance: VITAMINS
     Dosage: 10 ML
     Route: 065
     Dates: start: 20210915, end: 20210915
  11. VITAMINS NOS [Concomitant]
     Active Substance: VITAMINS
     Dosage: 10 ML
     Route: 065
     Dates: start: 20210916, end: 20210916
  12. VITAMINS NOS [Concomitant]
     Active Substance: VITAMINS
     Dosage: 10 ML
     Route: 065
     Dates: start: 20210917, end: 20210917
  13. SODIUM [Concomitant]
     Active Substance: SODIUM
     Indication: Drug therapy
     Dosage: 4 G
     Route: 065
     Dates: start: 20210911, end: 20211118
  14. POTASSIUM [Concomitant]
     Active Substance: POTASSIUM
     Indication: Drug therapy
     Dosage: 3 G
     Route: 065
     Dates: start: 20210911, end: 20211118
  15. TRACE ELEMENT [Concomitant]
     Indication: Drug therapy
     Dosage: 4 G
     Route: 065
     Dates: start: 20210912, end: 20210912
  16. TRACE ELEMENT [Concomitant]
     Dosage: 3 G
     Route: 065
     Dates: start: 20210912, end: 20210912
  17. TRACE ELEMENT [Concomitant]
     Dosage: 4 G
     Route: 065
     Dates: start: 20210913, end: 20210913
  18. TRACE ELEMENT [Concomitant]
     Dosage: 3 G
     Route: 065
     Dates: start: 20210913, end: 20210913
  19. TRACE ELEMENT [Concomitant]
     Dosage: 4 G
     Route: 065
     Dates: start: 20210914, end: 20210914
  20. TRACE ELEMENT [Concomitant]
     Dosage: 3 G
     Route: 065
     Dates: start: 20210914, end: 20210914
  21. TRACE ELEMENT [Concomitant]
     Dosage: 4 G
     Route: 065
     Dates: start: 20210915, end: 20210915
  22. TRACE ELEMENT [Concomitant]
     Dosage: 3 G
     Route: 065
     Dates: start: 20210915, end: 20210915
  23. TRACE ELEMENT [Concomitant]
     Dosage: 4 G
     Route: 065
     Dates: start: 20210916, end: 20210916
  24. TRACE ELEMENT [Concomitant]
     Dosage: 3 G
     Route: 065
     Dates: start: 20210916, end: 20210916
  25. TRACE ELEMENT [Concomitant]
     Dosage: 3 G
     Route: 065
     Dates: start: 20210917, end: 20210917
  26. TRACE ELEMENT [Concomitant]
     Dosage: 4 G
     Route: 065
     Dates: start: 20210917, end: 20210917
  27. INSULIN NOS [Concomitant]
     Active Substance: INSULIN NOS
     Indication: Drug therapy
     Dosage: 20 U
     Route: 065
     Dates: start: 20210912, end: 20210912
  28. INSULIN NOS [Concomitant]
     Active Substance: INSULIN NOS
     Dosage: 20 U
     Route: 065
     Dates: start: 20210913, end: 20210913
  29. INSULIN NOS [Concomitant]
     Active Substance: INSULIN NOS
     Dosage: 20 U
     Route: 065
     Dates: start: 20210914, end: 20210914
  30. INSULIN NOS [Concomitant]
     Active Substance: INSULIN NOS
     Dosage: 20 U
     Route: 065
     Dates: start: 20210915, end: 20210915
  31. INSULIN NOS [Concomitant]
     Active Substance: INSULIN NOS
     Dosage: 20 U
     Route: 065
     Dates: start: 20210916, end: 20210916
  32. INSULIN NOS [Concomitant]
     Active Substance: INSULIN NOS
     Dosage: 20 U
     Route: 065
     Dates: start: 20210917, end: 20210917
  33. AMINO ACIDS, SOURCE UNSPECIFIED [Concomitant]
     Active Substance: AMINO ACIDS, SOURCE UNSPECIFIED
     Indication: Drug therapy
     Dosage: 600 ML
     Route: 065
     Dates: start: 20210912, end: 20210912
  34. AMINO ACIDS, SOURCE UNSPECIFIED [Concomitant]
     Active Substance: AMINO ACIDS, SOURCE UNSPECIFIED
     Dosage: 600 ML
     Route: 065
     Dates: start: 20210913, end: 20210913
  35. AMINO ACIDS, SOURCE UNSPECIFIED [Concomitant]
     Active Substance: AMINO ACIDS, SOURCE UNSPECIFIED
     Dosage: 600 ML
     Route: 065
     Dates: start: 20210914, end: 20210914
  36. AMINO ACIDS, SOURCE UNSPECIFIED [Concomitant]
     Active Substance: AMINO ACIDS, SOURCE UNSPECIFIED
     Dosage: 600 ML
     Route: 065
     Dates: start: 20210915, end: 20210915
  37. AMINO ACIDS, SOURCE UNSPECIFIED [Concomitant]
     Active Substance: AMINO ACIDS, SOURCE UNSPECIFIED
     Dosage: 600 ML
     Route: 065
     Dates: start: 20210916, end: 20210916
  38. AMINO ACIDS, SOURCE UNSPECIFIED [Concomitant]
     Active Substance: AMINO ACIDS, SOURCE UNSPECIFIED
     Dosage: 600 ML
     Route: 065
     Dates: start: 20210917, end: 20210917

REACTIONS (1)
  - Postoperative wound infection [Recovered/Resolved]

NARRATIVE: CASE EVENT DATE: 20210915
